FAERS Safety Report 8783055 (Version 1)
Quarter: 2012Q4

REPORT INFORMATION
  Report Type: Report from Study
  Country: US (occurrence: US)
  Receive Date: 20120913
  Receipt Date: 20120913
  Transmission Date: 20130627
  Serious: No
  Sender: FDA-Public Use
  Company Number: US-VERTEX PHARMACEUTICAL INC.-AE-2012-009563

PATIENT
  Age: 42 Year
  Sex: Female
  Weight: 56.82 kg

DRUGS (4)
  1. INCIVEK [Suspect]
     Indication: HEPATITIS C
     Route: 048
  2. AMBIEN [Concomitant]
  3. VITAMIN D [Concomitant]
  4. VITAMIN C [Concomitant]

REACTIONS (4)
  - Rash erythematous [Unknown]
  - Nausea [Unknown]
  - Pruritus [Unknown]
  - Anorectal discomfort [Unknown]
